FAERS Safety Report 4945822-3 (Version None)
Quarter: 2006Q1

REPORT INFORMATION
  Report Type: 
  Country: None (occurrence: None)
  Receive Date: 20060117
  Receipt Date: 20050908
  Transmission Date: 20060701
  Serious: Yes (Hospitalization)
  Sender: FDA-Public Use
  Company Number: A03200502842

PATIENT
  Age: 77 Year
  Sex: Male
  Weight: 86.17 kg

DRUGS (10)
  1. PLAVIX [Suspect]
     Indication: STENT PLACEMENT
     Dosage: 75 MG QD - ORAL
     Route: 048
     Dates: start: 20050312
  2. LISINOPRIL [Concomitant]
  3. HYDROCHLOROTHIAZIDE [Concomitant]
  4. SIMVASTATIN [Concomitant]
  5. TAMSULOSIN HYDROCHLORIDE [Concomitant]
  6. VALDECOXIB [Concomitant]
  7. CELECOXIB [Concomitant]
  8. GLUCOSMAINE CHONDROITIN [Concomitant]
  9. METHYLSULFONYLMETHANE (MSM) [Concomitant]
  10. ALEVE [Concomitant]

REACTIONS (2)
  - DIARRHOEA [None]
  - HYPOTENSION [None]
